FAERS Safety Report 4326061-6 (Version None)
Quarter: 2004Q1

REPORT INFORMATION
  Report Type: 
  Country: None (occurrence: None)
  Receive Date: 20040323
  Receipt Date: 20040308
  Transmission Date: 20041129
  Serious: Yes (Hospitalization)
  Sender: FDA-Public Use
  Company Number: M04-341-082

PATIENT
  Age: 69 Year
  Sex: Male
  Weight: 82 kg

DRUGS (1)
  1. VELCADE [Suspect]
     Indication: CHRONIC LYMPHOCYTIC LEUKAEMIA
     Dosage: 2.5 MG: INTRAVENOUS BOLUS
     Route: 040
     Dates: start: 20031010, end: 20031120

REACTIONS (4)
  - ASTHENIA [None]
  - HERPES ZOSTER [None]
  - PAIN [None]
  - URINARY TRACT OBSTRUCTION [None]
